FAERS Safety Report 5597759-7 (Version None)
Quarter: 2007Q4

REPORT INFORMATION
  Report Type: 
  Country: None (occurrence: None)
  Receive Date: 20071221
  Receipt Date: 20071018
  Transmission Date: 20080405
  Serious: Yes (Hospitalization)
  Sender: FDA-Public Use
  Company Number: US-CVT-070157

PATIENT
  Age: 57 Year
  Sex: Male

DRUGS (15)
  1. RANEXA [Suspect]
     Indication: ANGINA PECTORIS
     Dosage: 500 MG, BID, ORAL ; 500 MG, QD, ORAL
     Route: 048
     Dates: start: 20070508, end: 20070912
  2. RANEXA [Suspect]
     Indication: ANGINA PECTORIS
     Dosage: 500 MG, BID, ORAL ; 500 MG, QD, ORAL
     Route: 048
     Dates: start: 20070912
  3. COREG [Concomitant]
  4. ZETIA [Concomitant]
  5. FUROSEMIDE/00032601/ (FUROSEMIDE) [Concomitant]
  6. CRESTOR [Concomitant]
  7. ALTACE [Concomitant]
  8. COUMADIN [Concomitant]
  9. LANOXIN [Concomitant]
  10. ASPIRIN [Concomitant]
  11. INSPRA [Concomitant]
  12. ALLOPURINOL [Concomitant]
  13. MULTIVITAMIN/00831701/ (VITAMINS NOS) [Concomitant]
  14. VITAMIN E/00110501/ (TOCOPHEROL) [Concomitant]
  15. ASCORBIC ACID [Concomitant]

REACTIONS (5)
  - CONTUSION [None]
  - ISCHAEMIC CARDIOMYOPATHY [None]
  - SYNCOPE [None]
  - VENTRICULAR FIBRILLATION [None]
  - VENTRICULAR TACHYCARDIA [None]
